FAERS Safety Report 13121866 (Version 3)
Quarter: 2017Q1

REPORT INFORMATION
  Report Type: Report from Study
  Country: BR (occurrence: BR)
  Receive Date: 20170117
  Receipt Date: 20170324
  Transmission Date: 20170428
  Serious: Yes (Other)
  Sender: FDA-Public Use
  Company Number: BR-JNJFOC-20170111266

PATIENT
  Sex: Female
  Weight: 63 kg

DRUGS (5)
  1. METICORTEN [Concomitant]
     Active Substance: PREDNISONE
  2. BACTRIM [Concomitant]
     Active Substance: SULFAMETHOXAZOLE\TRIMETHOPRIM
  3. IMBRUVICA [Suspect]
     Active Substance: IBRUTINIB
     Indication: CHRONIC LYMPHOCYTIC LEUKAEMIA
     Route: 048
     Dates: start: 20161015
  4. CYMBALTA [Concomitant]
     Active Substance: DULOXETINE HYDROCHLORIDE
  5. IMBRUVICA [Suspect]
     Active Substance: IBRUTINIB
     Indication: B-CELL SMALL LYMPHOCYTIC LYMPHOMA
     Route: 048
     Dates: start: 20161015

REACTIONS (9)
  - Constipation [Unknown]
  - Drug ineffective [Unknown]
  - Nausea [Unknown]
  - Eye infection toxoplasmal [Unknown]
  - Tachycardia [Unknown]
  - Fatigue [Unknown]
  - Haematoma [Recovering/Resolving]
  - Diarrhoea [Unknown]
  - Insomnia [Unknown]
